FAERS Safety Report 9301039 (Version 1)
Quarter: 2013Q2

REPORT INFORMATION
  Report Type: Spontaneous
  Country: US (occurrence: US)
  Receive Date: 20130521
  Receipt Date: 20130521
  Transmission Date: 20140414
  Serious: No
  Sender: FDA-Public Use
  Company Number: US-PFIZER INC-2013154420

PATIENT
  Age: 50 Year
  Sex: Male
  Weight: 63.49 kg

DRUGS (4)
  1. CELEBREX [Suspect]
     Indication: OSTEOARTHRITIS
     Dosage: 200 MG, 1X/DAY
     Route: 048
     Dates: start: 20130514, end: 20130516
  2. GABAPENTIN [Concomitant]
     Indication: OSTEOARTHRITIS
     Dosage: 300 MG, 1X/DAY
  3. GABAPENTIN [Concomitant]
     Indication: SLEEP DISORDER
  4. TRAMADOL [Concomitant]
     Indication: PAIN
     Dosage: 50 MG, 1X/DAY

REACTIONS (2)
  - Expired drug administered [Not Recovered/Not Resolved]
  - Feeling jittery [Not Recovered/Not Resolved]
